FAERS Safety Report 7465719-7 (Version None)
Quarter: 2011Q2

REPORT INFORMATION
  Report Type: 
  Country: None (occurrence: None)
  Receive Date: 20110509
  Receipt Date: 20110502
  Transmission Date: 20111010
  Serious: Yes (Hospitalization)
  Sender: FDA-Public Use
  Company Number: B0717687A

PATIENT
  Sex: Female
  Weight: 63.5 kg

DRUGS (3)
  1. PREDNISOLONE [Suspect]
     Indication: MULTIPLE MYELOMA
     Dosage: 127MG CYCLIC
     Dates: start: 20080303
  2. LENALIDOMIDE [Suspect]
     Indication: MULTIPLE MYELOMA
     Route: 048
     Dates: start: 20080303
  3. MELPHALAN HYDROCHLORIDE [Suspect]
     Indication: MULTIPLE MYELOMA
     Dosage: 12MG CYCLIC
     Route: 065
     Dates: start: 20080303

REACTIONS (2)
  - GASTROENTERITIS [None]
  - FEBRILE NEUTROPENIA [None]
